FAERS Safety Report 8857441 (Version 1)
Quarter: 2012Q4

REPORT INFORMATION
  Report Type: 
  Country: US (occurrence: US)
  Receive Date: 20121024
  Receipt Date: 20121024
  Transmission Date: 20130627
  Serious: Yes (Hospitalization)
  Sender: FDA-Public Use
  Company Number: US-NOVEN-12US005526

PATIENT
  Sex: Female

DRUGS (1)
  1. PEXEVA [Suspect]
     Indication: PANIC DISORDER
     Dosage: 40 mg, qd
     Route: 048
     Dates: start: 2007

REACTIONS (1)
  - Gastrectomy [Not Recovered/Not Resolved]
